FAERS Safety Report 11461321 (Version 1)
Quarter: 2015Q3

REPORT INFORMATION
  Report Type: Spontaneous
  Country: US (occurrence: US)
  Receive Date: 20150831
  Receipt Date: 20150831
  Transmission Date: 20151125
  Serious: No
  Sender: FDA-Public Use
  Company Number: US-ELI_LILLY_AND_COMPANY-US201007004226

PATIENT
  Sex: Male

DRUGS (2)
  1. ANTIHYPERTENSIVES [Concomitant]
     Active Substance: UNSPECIFIED INGREDIENT
  2. CYMBALTA [Suspect]
     Active Substance: DULOXETINE HYDROCHLORIDE
     Indication: DEPRESSION
     Dosage: UNK, UNKNOWN

REACTIONS (9)
  - Drug effect decreased [Unknown]
  - Hostility [Unknown]
  - Depression [Unknown]
  - Blood pressure increased [Not Recovered/Not Resolved]
  - Thinking abnormal [Not Recovered/Not Resolved]
  - Abnormal behaviour [Unknown]
  - Hyperhidrosis [Unknown]
  - Feeling abnormal [Not Recovered/Not Resolved]
  - Agitation [Unknown]
